FAERS Safety Report 9973892 (Version 2)
Quarter: 2014Q1

REPORT INFORMATION
  Report Type: Report from Study
  Country: JP (occurrence: JP)
  Receive Date: 20140306
  Receipt Date: 20140306
  Transmission Date: 20141002
  Serious: Yes (Hospitalization)
  Sender: FDA-Public Use
  Company Number: PHHO2012JP004336

PATIENT
  Age: 80 Year
  Sex: Male
  Weight: 67 kg

DRUGS (7)
  1. EVEROLIMUS [Suspect]
     Indication: HEPATOCELLULAR CARCINOMA
     Dosage: 7.5 MG, QD
     Route: 048
     Dates: start: 20120215, end: 20120311
  2. CRAVIT [Suspect]
  3. LOXONIN [Suspect]
  4. GASLON [Concomitant]
     Indication: GASTRITIS ATROPHIC
     Dosage: 4 MG, UNK
     Route: 048
     Dates: start: 20080305, end: 20120314
  5. OMEPRAL [Concomitant]
     Indication: GASTRITIS ATROPHIC
     Dosage: 20 MG, UNK
     Route: 048
     Dates: start: 20120119, end: 20120314
  6. OLMETEC [Concomitant]
     Indication: HYPERTENSION
     Dosage: 40 MG, UNK
     Route: 048
     Dates: start: 20100908, end: 20120314
  7. CALBLOCK [Concomitant]
     Indication: HYPERTENSION
     Dosage: 16 MG, UNK
     Route: 048
     Dates: start: 20100919, end: 20120314

REACTIONS (1)
  - Renal disorder [Recovered/Resolved]
